FAERS Safety Report 14653532 (Version 1)
Quarter: 2018Q1

REPORT INFORMATION
  Report Type: Spontaneous
  Country: IT (occurrence: IT)
  Receive Date: 20180319
  Receipt Date: 20180319
  Transmission Date: 20180509
  Serious: Yes (Hospitalization, Other)
  Sender: FDA-Public Use
  Company Number: IT-BRISTOL-MYERS SQUIBB COMPANY-BMS-2015-061324

PATIENT
  Age: 73 Year
  Sex: Female

DRUGS (1)
  1. METFORMIN HYDROCHLORIDE. [Suspect]
     Active Substance: METFORMIN HYDROCHLORIDE
     Indication: TYPE 2 DIABETES MELLITUS
     Dosage: 2 G, QD
     Route: 065

REACTIONS (11)
  - Disorientation [Recovering/Resolving]
  - Acute kidney injury [Recovered/Resolved]
  - Asthenia [Recovering/Resolving]
  - Lactic acidosis [Recovering/Resolving]
  - Oliguria [Unknown]
  - Dyspnoea [Recovering/Resolving]
  - Renal impairment [Unknown]
  - Diarrhoea [Recovering/Resolving]
  - Gastrointestinal disorder [Unknown]
  - Decreased appetite [Recovering/Resolving]
  - Vomiting [Unknown]
